FAERS Safety Report 15665001 (Version 10)
Quarter: 2022Q3

REPORT INFORMATION
  Report Type: Report from Study
  Country: US (occurrence: None)
  Receive Date: 20181128
  Receipt Date: 20220720
  Transmission Date: 20221027
  Serious: Yes (Hospitalization)
  Sender: FDA-Public Use
  Company Number: US-ROCHE-2219517

PATIENT
  Age: 60 Year
  Sex: Female
  Weight: 54.9 kg

DRUGS (14)
  1. ATEZOLIZUMAB [Suspect]
     Active Substance: ATEZOLIZUMAB
     Indication: Ovarian cancer
     Dosage: MOST RECENT DOSE OF BLINDED ATEZOLIZUMAB PRIOR TO SAE ONSET RECEIVED ON 07/NOV/2018.?ON DAY 1 OF EAC
     Route: 042
     Dates: start: 20181107
  2. PACLITAXEL [Suspect]
     Active Substance: PACLITAXEL
     Indication: Ovarian cancer
     Dosage: MOST RECENT DOSE OF PACLITAXEL ADMINISTERED PRIOR TO SAE ONSET WAS ON 07/NOV/2018 (273 MG)?ON DAY 1
     Route: 042
     Dates: start: 20181107
  3. CARBOPLATIN [Suspect]
     Active Substance: CARBOPLATIN
     Indication: Ovarian cancer
     Dosage: MOST RECENT DOSE OF CARBOPLATIN ADMINISTERED PRIOR TO SAE ONSET WAS ON 07/NOV/2018 (604.8 MG)?ON DAY
     Route: 042
     Dates: start: 20181107
  4. MELATONIN [Concomitant]
     Active Substance: MELATONIN
     Indication: Insomnia
     Dates: start: 20181102
  5. BENADRYL [Concomitant]
     Active Substance: DIPHENHYDRAMINE HYDROCHLORIDE
     Indication: Insomnia
     Dates: start: 20181102
  6. HYDROCHLOROTHIAZIDE\LISINOPRIL [Concomitant]
     Active Substance: HYDROCHLOROTHIAZIDE\LISINOPRIL
     Indication: Hypertension
     Dates: start: 20131122
  7. PREVNAR 13 [Concomitant]
     Active Substance: PNEUMOCOCCAL 13-VALENT CONJUGATE VACCINE
     Indication: Prophylaxis
     Dates: start: 20181102, end: 20181102
  8. POTASSIUM CHLORIDE [Concomitant]
     Active Substance: POTASSIUM CHLORIDE
     Indication: Hypokalaemia
     Route: 048
     Dates: start: 20181119, end: 20181122
  9. POTASSIUM CHLORIDE [Concomitant]
     Active Substance: POTASSIUM CHLORIDE
     Route: 042
     Dates: start: 20181119, end: 20181119
  10. ZARXIO [Concomitant]
     Active Substance: FILGRASTIM-SNDZ
     Indication: White blood cell count decreased
     Dates: start: 20181120, end: 20190604
  11. ASPIRIN [Concomitant]
     Active Substance: ASPIRIN
     Indication: Prophylaxis
     Dates: start: 20180901
  12. PEPCID [Concomitant]
     Active Substance: FAMOTIDINE
     Dates: start: 20181107, end: 20181107
  13. DECADRON [Concomitant]
     Active Substance: DEXAMETHASONE
     Route: 048
     Dates: start: 20181106, end: 20181106
  14. DECADRON [Concomitant]
     Active Substance: DEXAMETHASONE
     Route: 048
     Dates: start: 20181107, end: 20181107

REACTIONS (2)
  - Febrile neutropenia [Recovered/Resolved]
  - Rash maculo-papular [Recovered/Resolved]

NARRATIVE: CASE EVENT DATE: 20181118
